FAERS Safety Report 19077578 (Version 1)
Quarter: 2021Q1

REPORT INFORMATION
  Report Type: Spontaneous
  Country: US (occurrence: US)
  Receive Date: 20210331
  Receipt Date: 20210331
  Transmission Date: 20210420
  Serious: No
  Sender: FDA-Public Use
  Company Number: US-TEVA-2021-US-1896900

PATIENT
  Sex: Male

DRUGS (1)
  1. QNASL [Suspect]
     Active Substance: BECLOMETHASONE DIPROPIONATE
     Indication: ALLERGIC SINUSITIS
     Dosage: STRENGTH :80
     Route: 065

REACTIONS (3)
  - Drug ineffective [Unknown]
  - Device malfunction [Unknown]
  - Therapy interrupted [Unknown]
